FAERS Safety Report 6823783-X (Version None)
Quarter: 2010Q3

REPORT INFORMATION
  Report Type: 
  Country: None (occurrence: None)
  Receive Date: 20100708
  Receipt Date: 20061204
  Transmission Date: 20110219
  Serious: No
  Sender: FDA-Public Use
  Company Number: US-PFIZER INC-2006102766

PATIENT
  Sex: Female
  Weight: 50.8 kg

DRUGS (4)
  1. CHANTIX [Suspect]
     Indication: SMOKING CESSATION THERAPY
     Dates: start: 20060101
  2. ENSURE [Suspect]
     Indication: WEIGHT INCREASED
     Dates: start: 20060801
  3. VICODIN [Concomitant]
  4. VALIUM [Concomitant]

REACTIONS (3)
  - ABDOMINAL PAIN [None]
  - NAUSEA [None]
  - STRESS [None]
